FAERS Safety Report 20246520 (Version 1)
Quarter: 2021Q4

REPORT INFORMATION
  Report Type: Spontaneous
  Country: US (occurrence: US)
  Receive Date: 20211229
  Receipt Date: 20211229
  Transmission Date: 20220303
  Serious: Yes (Death)
  Sender: FDA-Public Use
  Company Number: US-BAUSCH-BL-2021-042377

PATIENT
  Age: 62 Year
  Sex: Male

DRUGS (6)
  1. METFORMIN [Suspect]
     Active Substance: METFORMIN HYDROCHLORIDE
     Indication: Product used for unknown indication
     Dosage: INGESTION
     Route: 048
  2. CARBON MONOXIDE [Suspect]
     Active Substance: CARBON MONOXIDE
     Indication: Product used for unknown indication
     Dosage: INGESTION
     Route: 048
  3. CARBON MONOXIDE [Suspect]
     Active Substance: CARBON MONOXIDE
     Dosage: INHALATION
     Route: 055
  4. ALCOHOL [Suspect]
     Active Substance: ALCOHOL
     Indication: Product used for unknown indication
     Dosage: INGESTION
     Route: 048
  5. ALCOHOL [Suspect]
     Active Substance: ALCOHOL
     Route: 055
  6. METFORMIN [Suspect]
     Active Substance: METFORMIN HYDROCHLORIDE
     Indication: Product used for unknown indication
     Dosage: INHALATION
     Route: 055

REACTIONS (1)
  - Death [Fatal]
